FAERS Safety Report 23746658 (Version 1)
Quarter: 2024Q2

REPORT INFORMATION
  Report Type: Report from Study
  Country: US (occurrence: US)
  Receive Date: 20240416
  Receipt Date: 20240416
  Transmission Date: 20240716
  Serious: Yes (Hospitalization, Other)
  Sender: FDA-Public Use
  Company Number: US-TAKEDA-US202014511

PATIENT
  Age: 85 Year
  Sex: Female

DRUGS (2)
  1. HUMAN IMMUNOGLOBULIN G [Suspect]
     Active Substance: HUMAN IMMUNOGLOBULIN G
     Indication: Primary immunodeficiency syndrome
     Dosage: 20 GRAM, Q6WEEKS
     Route: 042
  2. HUMAN IMMUNOGLOBULIN G [Suspect]
     Active Substance: HUMAN IMMUNOGLOBULIN G
     Indication: Immunodeficiency common variable

REACTIONS (17)
  - Pelvic fracture [Unknown]
  - Malaise [Unknown]
  - Tremor [Unknown]
  - Nasopharyngitis [Unknown]
  - Osteoporosis [Unknown]
  - Feeling cold [Unknown]
  - Somnolence [Unknown]
  - Rhinorrhoea [Unknown]
  - Blood pressure increased [Recovered/Resolved]
  - Cough [Unknown]
  - Chills [Unknown]
  - Dizziness [Unknown]
  - Accident [Unknown]
  - Gait disturbance [Unknown]
  - COVID-19 [Recovered/Resolved]
  - Fatigue [Unknown]
  - Inappropriate schedule of product administration [Unknown]

NARRATIVE: CASE EVENT DATE: 20200423
